FAERS Safety Report 7242987 (Version 6)
Quarter: 2014Q4

REPORT INFORMATION
  Report Type: Spontaneous
  Country: US (occurrence: US)
  Receive Date: 20100112
  Receipt Date: 20141201
  Transmission Date: 20150529
  Serious: Yes (Hospitalization)
  Sender: FDA-Public Use
  Company Number: US-BAYER-201010626NA

PATIENT
  Age: 44 Year
  Sex: Female
  Weight: 99.09 kg

DRUGS (28)
  1. SARAFEM [Concomitant]
     Active Substance: FLUOXETINE HYDROCHLORIDE
     Dosage: EVERY DAY
  2. DICLOFEN [DICLOFENAC SODIUM] [Concomitant]
     Dosage: 75 MG, UNK
     Dates: start: 20071005
  3. FROVA [Concomitant]
     Active Substance: FROVATRIPTAN SUCCINATE
  4. LIPITOR [Concomitant]
     Active Substance: ATORVASTATIN CALCIUM
  5. VOLTAREN [Concomitant]
     Active Substance: DICLOFENAC SODIUM
     Dosage: UNK
     Dates: start: 20070917
  6. LIPITOR [Concomitant]
     Active Substance: ATORVASTATIN CALCIUM
  7. PROZAC [Concomitant]
     Active Substance: FLUOXETINE HYDROCHLORIDE
     Indication: PREMENSTRUAL DYSPHORIC DISORDER
     Dosage: UNK
     Dates: start: 2008
  8. HYDROCODONE W/ACETAMINOPHEN [Concomitant]
     Active Substance: ACETAMINOPHEN\HYDROCODONE BITARTRATE
     Dosage: 5-500 MG
     Dates: start: 20080108
  9. LIDOCAINE. [Concomitant]
     Active Substance: LIDOCAINE
     Dosage: 1 %, UNK
  10. VERSED [Concomitant]
     Active Substance: MIDAZOLAM HYDROCHLORIDE
     Dosage: 2 MG, UNK
     Route: 042
  11. FROVA [Concomitant]
     Active Substance: FROVATRIPTAN SUCCINATE
     Dosage: 2.5 MG, UNK
     Dates: start: 20080109
  12. AZITHROMYCIN [Concomitant]
     Active Substance: AZITHROMYCIN ANHYDROUS
     Dosage: MULTIPLE TIMES
  13. SARAFEM [Concomitant]
     Active Substance: FLUOXETINE HYDROCHLORIDE
     Dosage: 20 MG, UNK
     Dates: start: 20071227
  14. NEURONTIN [Concomitant]
     Active Substance: GABAPENTIN
     Dosage: 300 MG ONCE A DAY AND 600 MG AT BEDTIME
  15. HYDROCODONE [Concomitant]
     Active Substance: HYDROCODONE
  16. LIPITOR [Concomitant]
     Active Substance: ATORVASTATIN CALCIUM
  17. OMNIPAQUE [Concomitant]
     Active Substance: IOHEXOL
  18. LYRICA [Concomitant]
     Active Substance: PREGABALIN
  19. NAROPIN [Concomitant]
     Active Substance: ROPIVACAINE HYDROCHLORIDE
     Dosage: 1 CC, UNK
  20. YASMIN [Suspect]
     Active Substance: DROSPIRENONE\ETHINYL ESTRADIOL
     Indication: PREMENSTRUAL DYSPHORIC DISORDER
     Dosage: UNK
     Route: 048
     Dates: start: 2002, end: 200801
  21. LIPITOR [Concomitant]
     Active Substance: ATORVASTATIN CALCIUM
  22. GABAPENTIN. [Concomitant]
     Active Substance: GABAPENTIN
     Dosage: 300 MG, UNK
     Dates: start: 20080108
  23. KENALOG [Concomitant]
     Active Substance: TRIAMCINOLONE ACETONIDE
  24. FENTANYL. [Concomitant]
     Active Substance: FENTANYL
     Dosage: 25 MG, 5 DOSES
     Route: 042
  25. TOPAMAX [Concomitant]
     Active Substance: TOPIRAMATE
     Dosage: EVERY DAY
     Route: 048
  26. IBUPROFEN. [Concomitant]
     Active Substance: IBUPROFEN
  27. DEXAMETHASONE. [Concomitant]
     Active Substance: DEXAMETHASONE
     Dosage: 120MG/30 ML
     Dates: start: 20071116
  28. XYLOCAINE [Concomitant]
     Active Substance: LIDOCAINE HYDROCHLORIDE
     Indication: NERVE BLOCK
     Dosage: 1 %, UNK

REACTIONS (17)
  - Aphasia [Not Recovered/Not Resolved]
  - Dysarthria [Not Recovered/Not Resolved]
  - Dizziness [Not Recovered/Not Resolved]
  - Hypoaesthesia [Not Recovered/Not Resolved]
  - Motor dysfunction [Not Recovered/Not Resolved]
  - Paraesthesia [Not Recovered/Not Resolved]
  - Confusional state [Not Recovered/Not Resolved]
  - Speech disorder [Not Recovered/Not Resolved]
  - Frustration [None]
  - Headache [Not Recovered/Not Resolved]
  - Cerebrovascular accident [Not Recovered/Not Resolved]
  - Vision blurred [Not Recovered/Not Resolved]
  - Abasia [Not Recovered/Not Resolved]
  - Muscular weakness [Not Recovered/Not Resolved]
  - Amnesia [Not Recovered/Not Resolved]
  - Fatigue [Not Recovered/Not Resolved]
  - Unresponsive to stimuli [Not Recovered/Not Resolved]

NARRATIVE: CASE EVENT DATE: 20080112
